FAERS Safety Report 11907380 (Version 4)
Quarter: 2016Q1

REPORT INFORMATION
  Report Type: Spontaneous
  Country: BR (occurrence: BR)
  Receive Date: 20160111
  Receipt Date: 20160302
  Transmission Date: 20160526
  Serious: Yes (Death, Hospitalization)
  Sender: FDA-Public Use
  Company Number: BR-PFIZER INC-2015435755

PATIENT
  Age: 54 Year
  Sex: Male
  Weight: 118 kg

DRUGS (5)
  1. SUTENT [Suspect]
     Active Substance: SUNITINIB MALATE
     Indication: METASTATIC RENAL CELL CARCINOMA
     Dosage: 1 CAPSULE DAILY
     Route: 048
     Dates: start: 20151129
  2. SUTENT [Suspect]
     Active Substance: SUNITINIB MALATE
     Dosage: 50 MG CYCLE 4X2
     Route: 048
     Dates: start: 20151201, end: 201601
  3. METFORMIN [Concomitant]
     Active Substance: METFORMIN HYDROCHLORIDE
     Indication: DIABETES MELLITUS
     Dosage: UNK
  4. LOSARTAN. [Concomitant]
     Active Substance: LOSARTAN
     Indication: HYPERTENSION
     Dosage: 50 MG, UNK
  5. SERTRALINE [Concomitant]
     Active Substance: SERTRALINE HYDROCHLORIDE
     Indication: DEPRESSION
     Dosage: UNK

REACTIONS (15)
  - Fall [Unknown]
  - Limb injury [Unknown]
  - Pyrexia [Unknown]
  - Disease progression [Not Recovered/Not Resolved]
  - Death [Fatal]
  - Sluggishness [Not Recovered/Not Resolved]
  - Pain in extremity [Not Recovered/Not Resolved]
  - Somnolence [Not Recovered/Not Resolved]
  - Speech disorder [Unknown]
  - Metastatic renal cell carcinoma [Not Recovered/Not Resolved]
  - Hypokinesia [Unknown]
  - Condition aggravated [Unknown]
  - Dyspnoea [Unknown]
  - Eating disorder [Unknown]
  - Weight decreased [Not Recovered/Not Resolved]

NARRATIVE: CASE EVENT DATE: 20160117
